FAERS Safety Report 4509678-5 (Version None)
Quarter: 2004Q4

REPORT INFORMATION
  Report Type: 
  Country: None (occurrence: None)
  Receive Date: 20041124
  Receipt Date: 20041115
  Transmission Date: 20050328
  Serious: Yes (Death)
  Sender: FDA-Public Use
  Company Number: FR-BRISTOL-MYERS SQUIBB COMPANY-12774154

PATIENT
  Age: 63 Year
  Sex: Male

DRUGS (2)
  1. CYCLOPHOSPHAMIDE [Suspect]
     Indication: NON-HODGKIN'S LYMPHOMA STAGE IV
     Route: 042
     Dates: start: 20020615, end: 20030915
  2. VEPESIDE-SANDOZ [Suspect]
     Indication: NON-HODGKIN'S LYMPHOMA STAGE IV
     Route: 042
     Dates: start: 20020615, end: 20030915

REACTIONS (2)
  - ACUTE MYELOID LEUKAEMIA [None]
  - TREATMENT RELATED SECONDARY MALIGNANCY [None]
